FAERS Safety Report 7831485-6 (Version None)
Quarter: 2011Q4

REPORT INFORMATION
  Report Type: 
  Country: None (occurrence: None)
  Receive Date: 20111021
  Receipt Date: 20111021
  Transmission Date: 20120403
  Serious: Yes (Other)
  Sender: FDA-Public Use
  Company Number: None

PATIENT
  Age: 33 Year
  Sex: Female
  Weight: 77.11 kg

DRUGS (1)
  1. BOTOX [Suspect]
     Indication: HYPERSENSITIVITY
     Dosage: 80MG/UNITS
     Route: 030

REACTIONS (12)
  - PHOTOPHOBIA [None]
  - GAIT DISTURBANCE [None]
  - ASTHENIA [None]
  - ARTHRALGIA [None]
  - ABNORMAL BEHAVIOUR [None]
  - PAIN IN EXTREMITY [None]
  - MUSCULOSKELETAL PAIN [None]
  - IRRITABILITY [None]
  - SINUSITIS [None]
  - VISION BLURRED [None]
  - DIPLOPIA [None]
  - UPPER RESPIRATORY TRACT INFECTION [None]
